FAERS Safety Report 22188026 (Version 1)
Quarter: 2023Q2

REPORT INFORMATION
  Report Type: Other
  Country: US (occurrence: US)
  Receive Date: 20230408
  Receipt Date: 20230408
  Transmission Date: 20230722
  Serious: Yes (Death)
  Sender: FDA-Public Use
  Company Number: US-ALVOGEN-2023089810

PATIENT
  Age: 45 Year
  Sex: Male

DRUGS (3)
  1. AMPHETAMINE [Suspect]
     Active Substance: AMPHETAMINE
     Indication: Drug abuse
  2. OXYCODONE [Suspect]
     Active Substance: OXYCODONE
     Indication: Drug abuse
  3. CARISOPRODOL [Suspect]
     Active Substance: CARISOPRODOL
     Indication: Drug abuse

REACTIONS (1)
  - Drug abuse [Fatal]
